FAERS Safety Report 9688295 (Version 1)
Quarter: 2013Q4

REPORT INFORMATION
  Report Type: Spontaneous
  Country: FR (occurrence: FR)
  Receive Date: 20131114
  Receipt Date: 20131114
  Transmission Date: 20140711
  Serious: Yes (Death, Hospitalization)
  Sender: FDA-Public Use
  Company Number: PHHY2013FR126105

PATIENT
  Age: 10 Year
  Sex: Male

DRUGS (6)
  1. DESFERAL [Suspect]
     Indication: ACUTE MYELOID LEUKAEMIA
     Dosage: 100 MG/ML, UNK
     Dates: start: 201204
  2. CELLCEPT [Suspect]
     Dosage: 500 MG, BID
     Route: 042
     Dates: start: 20100712
  3. RAFTON [Concomitant]
     Dosage: 3 MG, UNK
     Route: 048
     Dates: start: 201205
  4. MABTHERA [Concomitant]
     Dosage: 4 DF, UNK
     Route: 042
     Dates: start: 201206
  5. KEPPRA [Concomitant]
     Dosage: UNK UKN, UNK
     Dates: start: 201205, end: 201207
  6. PROGRAF [Concomitant]
     Dosage: UNK UKN, UNK
     Dates: start: 201103

REACTIONS (2)
  - Acute myeloid leukaemia [Fatal]
  - Pancreatitis necrotising [Unknown]
